FAERS Safety Report 5964114-7 (Version None)
Quarter: 2008Q4

REPORT INFORMATION
  Report Type: 
  Country: None (occurrence: None)
  Receive Date: 20081124
  Receipt Date: 20081118
  Transmission Date: 20090506
  Serious: Yes (Congenital Anomaly)
  Sender: FDA-Public Use
  Company Number: BR-ROXANE LABORATORIES, INC.-2008-RO-00255RO

PATIENT

DRUGS (7)
  1. MYCOPHENOLATE MOFETIL [Suspect]
     Indication: DRUG EXPOSURE DURING PREGNANCY
     Dosage: 1000MG
  2. MYCOPHENOLATE MOFETIL [Suspect]
     Dosage: 500MG
  3. PREDNISONE TAB [Suspect]
     Indication: DRUG EXPOSURE DURING PREGNANCY
     Dosage: 5MG
  4. TACROLIMUS [Suspect]
     Indication: DRUG EXPOSURE DURING PREGNANCY
     Dosage: 6MG
  5. PRAVASTATIN [Suspect]
     Indication: DRUG EXPOSURE DURING PREGNANCY
     Dosage: 40MG
  6. DILTIAZEM [Suspect]
     Indication: DRUG EXPOSURE DURING PREGNANCY
     Dosage: 180MG
  7. CARBAMAZEPINE [Suspect]
     Indication: DRUG EXPOSURE DURING PREGNANCY

REACTIONS (6)
  - EXTERNAL AUDITORY CANAL ATRESIA [None]
  - EXTERNAL EAR DISORDER [None]
  - MICROPHTHALMOS [None]
  - PALATAL DISORDER [None]
  - PULMONARY VALVE STENOSIS [None]
  - UMBILICAL HERNIA [None]
